FAERS Safety Report 26167356 (Version 1)
Quarter: 2025Q4

REPORT INFORMATION
  Report Type: Spontaneous
  Country: EU (occurrence: EU)
  Receive Date: 20251217
  Receipt Date: 20251217
  Transmission Date: 20260118
  Serious: Yes (Other)
  Sender: WAYLIS THERAPEUTICS LLC
  Company Number: EU-WT-2025-1567

PATIENT
  Sex: Male

DRUGS (4)
  1. ESZOPICLONE [Suspect]
     Active Substance: ESZOPICLONE
     Indication: Sleep disorder
  2. OXAZEPAM [Concomitant]
     Active Substance: OXAZEPAM
  3. PREGABALIN [Concomitant]
     Active Substance: PREGABALIN
     Indication: Polyneuropathy
  4. DIHYDROCODEINE [Concomitant]
     Active Substance: DIHYDROCODEINE

REACTIONS (2)
  - Overdose [Not Recovered/Not Resolved]
  - Drug abuse [Not Recovered/Not Resolved]
